FAERS Safety Report 4274759-0 (Version None)
Quarter: 2004Q1

REPORT INFORMATION
  Report Type: 
  Country: None (occurrence: None)
  Receive Date: 20040120
  Receipt Date: 20040120
  Transmission Date: 20041129
  Serious: Yes (Other)
  Sender: FDA-Public Use
  Company Number: None

PATIENT
  Sex: Female
  Weight: 58.0604 kg

DRUGS (2)
  1. PRILOSEC [Suspect]
     Indication: GASTROOESOPHAGEAL REFLUX DISEASE
     Dosage: 1 PO QOD
     Route: 048
     Dates: start: 20031126
  2. CLARITIN [Concomitant]

REACTIONS (2)
  - ABDOMINAL PAIN UPPER [None]
  - OESOPHAGEAL PAIN [None]
